FAERS Safety Report 7079190-0 (Version None)
Quarter: 2010Q4

REPORT INFORMATION
  Report Type: 
  Country: None (occurrence: None)
  Receive Date: 20101102
  Receipt Date: 20101022
  Transmission Date: 20110411
  Serious: Yes (Hospitalization)
  Sender: FDA-Public Use
  Company Number: B0668653A

PATIENT
  Age: 42 Year
  Sex: Female
  Weight: 87 kg

DRUGS (5)
  1. LAMOTRIGINE [Suspect]
     Route: 048
  2. ASPIRIN [Suspect]
     Dosage: 75MG PER DAY
     Route: 048
  3. DALTEPARIN SODIUM [Suspect]
     Dosage: 212500UNIT CUMULATIVE DOSE
     Route: 058
  4. PROMETHAZINE [Suspect]
     Dosage: 625MG PER DAY
     Route: 048
  5. CITALOPRAM HYDROBROMIDE [Suspect]
     Dosage: 10MG PER DAY
     Route: 048

REACTIONS (5)
  - ACTIVATED PARTIAL THROMBOPLASTIN TIME PROLONGED [None]
  - MULTIPLE DRUG OVERDOSE INTENTIONAL [None]
  - POISONING DELIBERATE [None]
  - SOMNOLENCE [None]
  - SUICIDE ATTEMPT [None]
